FAERS Safety Report 4396353-3 (Version None)
Quarter: 2004Q3

REPORT INFORMATION
  Report Type: 
  Country: None (occurrence: None)
  Receive Date: 20040709
  Receipt Date: 20040629
  Transmission Date: 20050211
  Serious: Yes (Hospitalization)
  Sender: FDA-Public Use
  Company Number: BRO-007615

PATIENT
  Age: 85 Year
  Sex: Male

DRUGS (4)
  1. IOPAMIDOL [Suspect]
     Indication: AGE INDETERMINATE MYOCARDIAL INFARCTION
     Dosage: INTRACORONARY
     Route: 022
     Dates: start: 20040617, end: 20040617
  2. IOPAMIDOL [Suspect]
     Indication: ANGINA PECTORIS
     Dosage: INTRACORONARY
     Route: 022
     Dates: start: 20040617, end: 20040617
  3. IOPAMIDOL [Suspect]
     Indication: ARTERIOGRAM CORONARY
     Dosage: INTRACORONARY
     Route: 022
     Dates: start: 20040617, end: 20040617
  4. FLOMOX, (CEFCAPENE PIVOXIL HYDROCHLORIDE) [Concomitant]

REACTIONS (5)
  - OEDEMA MOUTH [None]
  - PHARYNGEAL OEDEMA [None]
  - SCROTAL ERYTHEMA [None]
  - SCROTAL PAIN [None]
  - STEVENS-JOHNSON SYNDROME [None]
